FAERS Safety Report 9542090 (Version 2)
Quarter: 2013Q3

REPORT INFORMATION
  Report Type: Spontaneous
  Country: US (occurrence: US)
  Receive Date: 20130923
  Receipt Date: 20130923
  Transmission Date: 20140515
  Serious: Yes (Other)
  Sender: FDA-Public Use
  Company Number: US-ASTELLAS-2013US009050

PATIENT
  Age: 86 Year
  Sex: Female

DRUGS (1)
  1. LEXISCAN [Suspect]
     Indication: CHEST DISCOMFORT
     Dosage: 0.08 MG/ML, TOTAL DOSE
     Route: 042
     Dates: start: 20130806

REACTIONS (4)
  - Off label use [Unknown]
  - Supraventricular extrasystoles [Recovered/Resolved]
  - Bradycardia [Recovered/Resolved]
  - Hypotension [Recovered/Resolved]
